FAERS Safety Report 11783153 (Version 1)
Quarter: 2015Q4

REPORT INFORMATION
  Report Type: Spontaneous
  Country: IT (occurrence: IT)
  Receive Date: 20151127
  Receipt Date: 20151127
  Transmission Date: 20160305
  Serious: Yes (Other)
  Sender: FDA-Public Use
  Company Number: IT-PFIZER INC-2015414423

PATIENT
  Age: 70 Year
  Sex: Male

DRUGS (5)
  1. PANTORC [Suspect]
     Active Substance: PANTOPRAZOLE SODIUM
     Dosage: 2 DF, DAILY
     Route: 048
     Dates: start: 20151019
  2. MESTINON [Suspect]
     Active Substance: PYRIDOSTIGMINE BROMIDE
     Dosage: 240 MG, DAILY
     Route: 048
     Dates: start: 20151019
  3. URBASON /00049601/ [Suspect]
     Active Substance: METHYLPREDNISOLONE
     Dosage: 80 MG, DAILY
     Route: 042
     Dates: start: 20151031
  4. LASIX [Suspect]
     Active Substance: FUROSEMIDE
     Dosage: UNK UNK, DAILY
     Route: 042
     Dates: start: 20151019
  5. CLEXANE [Suspect]
     Active Substance: ENOXAPARIN SODIUM
     Dosage: 4000 IU, DAILY
     Route: 058
     Dates: start: 20151020

REACTIONS (2)
  - Amylase increased [Unknown]
  - Respiratory failure [Unknown]

NARRATIVE: CASE EVENT DATE: 20151104
